FAERS Safety Report 5231274-5 (Version None)
Quarter: 2007Q1

REPORT INFORMATION
  Report Type: 
  Country: None (occurrence: None)
  Receive Date: 20070205
  Receipt Date: 20070205
  Transmission Date: 20070707
  Serious: Yes (Other)
  Sender: FDA-Public Use
  Company Number: None

PATIENT
  Sex: Female
  Weight: 60.3284 kg

DRUGS (3)
  1. HEPARIN [Suspect]
     Indication: CENTRAL VENOUS CATHETERISATION
     Dosage: 5ML IV AFTER ANTIBIOTIC DOSE
     Route: 042
     Dates: start: 20070120
  2. HEPARIN [Suspect]
     Indication: MASTITIS
     Dosage: 5ML IV AFTER ANTIBIOTIC DOSE
     Route: 042
     Dates: start: 20070120
  3. VANCOMYCIN HYDROCHLORIDE [Concomitant]

REACTIONS (2)
  - INFUSION RELATED REACTION [None]
  - RASH [None]
